FAERS Safety Report 15169661 (Version 5)
Quarter: 2019Q1

REPORT INFORMATION
  Report Type: Report from Study
  Country: GB (occurrence: GB)
  Receive Date: 20180720
  Receipt Date: 20190305
  Transmission Date: 20190417
  Serious: Yes (Life-Threatening, Hospitalization)
  Sender: FDA-Public Use
  Company Number: GB-ROCHE-2155601

PATIENT
  Age: 58 Year
  Sex: Female

DRUGS (23)
  1. CO-AMOXICLAV [Concomitant]
     Active Substance: AMOXICILLIN\CLAVULANATE POTASSIUM
     Indication: URINARY TRACT INFECTION
     Route: 048
     Dates: start: 20150918, end: 20150922
  2. PERTUZUMAB. [Suspect]
     Active Substance: PERTUZUMAB
     Dosage: MANITENANCE DOSE
     Route: 042
     Dates: start: 20150730, end: 20170223
  3. ANASTROZOLE. [Suspect]
     Active Substance: ANASTROZOLE
     Indication: HER-2 POSITIVE BREAST CANCER
     Route: 048
     Dates: start: 20151202
  4. CO-AMOXICLAV [Concomitant]
     Active Substance: AMOXICILLIN\CLAVULANATE POTASSIUM
     Route: 048
     Dates: start: 20151016, end: 20151021
  5. DENOSUMAB [Concomitant]
     Active Substance: DENOSUMAB
     Indication: METASTASES TO BONE
     Route: 058
     Dates: start: 20160810
  6. DEXAMETHASONE. [Concomitant]
     Active Substance: DEXAMETHASONE
     Route: 048
     Dates: start: 20170217, end: 20170221
  7. DEXAMETHASONE. [Concomitant]
     Active Substance: DEXAMETHASONE
     Route: 048
     Dates: start: 20170221
  8. TRASTUZUMAB. [Suspect]
     Active Substance: TRASTUZUMAB
     Indication: HER-2 POSITIVE BREAST CANCER
     Route: 042
     Dates: start: 20150708, end: 20150708
  9. PREDNISOLONE. [Concomitant]
     Active Substance: PREDNISOLONE
     Indication: LOWER RESPIRATORY TRACT INFECTION
     Route: 048
     Dates: start: 201601, end: 20160203
  10. LANSOPRAZOLE. [Concomitant]
     Active Substance: LANSOPRAZOLE
     Route: 048
     Dates: start: 20170222
  11. DOCETAXEL. [Suspect]
     Active Substance: DOCETAXEL
     Indication: HER-2 POSITIVE BREAST CANCER
     Route: 042
     Dates: start: 20150709, end: 20151112
  12. SALBUTAMOL [Concomitant]
     Active Substance: ALBUTEROL
  13. TRASTUZUMAB. [Suspect]
     Active Substance: TRASTUZUMAB
     Route: 042
     Dates: start: 20150730, end: 20170223
  14. MORPHINE SULPHATE [Concomitant]
     Active Substance: MORPHINE SULFATE
     Route: 048
     Dates: start: 20170221
  15. CLARITHROMYCIN. [Concomitant]
     Active Substance: CLARITHROMYCIN
     Route: 048
     Dates: start: 20180207, end: 20180214
  16. TRASTUZUMAB EMTANSINE [Suspect]
     Active Substance: ADO-TRASTUZUMAB EMTANSINE
     Indication: HER-2 POSITIVE BREAST CANCER
     Route: 042
     Dates: start: 20170323
  17. NITROFURANTOIN. [Concomitant]
     Active Substance: NITROFURANTOIN
     Route: 048
     Dates: start: 20170125
  18. PROCHLORPERAZINE. [Concomitant]
     Active Substance: PROCHLORPERAZINE
     Route: 048
     Dates: start: 20170913
  19. ZOMORPH [Concomitant]
     Active Substance: MORPHINE SULFATE
     Route: 048
     Dates: start: 20150703, end: 20170221
  20. METOCLOPRAMIDE. [Concomitant]
     Active Substance: METOCLOPRAMIDE
     Route: 048
     Dates: start: 20170222
  21. CALCICHEW D3 [Concomitant]
     Active Substance: CALCIUM\CHOLECALCIFEROL
     Route: 048
     Dates: start: 20160810
  22. PERTUZUMAB. [Suspect]
     Active Substance: PERTUZUMAB
     Indication: HER-2 POSITIVE BREAST CANCER
     Dosage: LOADING DOSE
     Route: 042
     Dates: start: 20150708
  23. ORAMORPH [Concomitant]
     Active Substance: MORPHINE SULFATE
     Route: 048
     Dates: start: 20170212

REACTIONS (1)
  - Embolism venous [Recovering/Resolving]

NARRATIVE: CASE EVENT DATE: 20180711
